FAERS Safety Report 19719918 (Version 1)
Quarter: 2021Q3

REPORT INFORMATION
  Report Type: Spontaneous
  Country: DE (occurrence: DE)
  Receive Date: 20210819
  Receipt Date: 20210819
  Transmission Date: 20211014
  Serious: Yes (Hospitalization, Other)
  Sender: FDA-Public Use
  Company Number: DE-TEVA-2021-DE-1942465

PATIENT
  Age: 80 Year
  Sex: Female
  Weight: 68 kg

DRUGS (11)
  1. MORPHIN [Concomitant]
     Active Substance: MORPHINE
     Dosage: 40 MILLIGRAM DAILY; 10 MG, 1?1?1?1
  2. MORPHIN [Concomitant]
     Active Substance: MORPHINE
     Dosage: 60 MILLIGRAM DAILY; 30 MG, 1?0?1?0
  3. METOCLOPRAMID [Concomitant]
     Active Substance: METOCLOPRAMIDE
     Dosage: 30 MILLIGRAM DAILY; 10 MG, 1?1?1?0
  4. TORASEMID [Concomitant]
     Active Substance: TORSEMIDE
     Dosage: 2 DOSAGE FORMS DAILY; 5 MG, 2?0?0?0
  5. CARBOPLATIN. [Suspect]
     Active Substance: CARBOPLATIN
     Dosage: SCHEME
     Route: 065
  6. KALIUMCHLORID [Concomitant]
     Active Substance: POTASSIUM CHLORIDE
     Dosage: 1 DOSAGE FORMS DAILY; 1?0?0?0
  7. METOPROLOL. [Concomitant]
     Active Substance: METOPROLOL
     Dosage: 47.5 MILLIGRAM DAILY; 47.5 MG, 1?0?0?0
  8. GABAPENTIN. [Concomitant]
     Active Substance: GABAPENTIN
     Dosage: 900 MILLIGRAM DAILY; 300 MG, 1?1?1?0
  9. CANDESARTAN. [Concomitant]
     Active Substance: CANDESARTAN
     Dosage: 8 MILLIGRAM DAILY; 8 MG, 1?0?0?0
  10. PACLITAXEL. [Suspect]
     Active Substance: PACLITAXEL
     Dosage: SCHEME
     Route: 065
  11. METAMIZOL [Concomitant]
     Active Substance: METAMIZOLE SODIUM
     Dosage: 2000 MILLIGRAM DAILY; 500 MG, 1?1?1?1

REACTIONS (5)
  - Dyspnoea [Unknown]
  - Skin irritation [Unknown]
  - Oedema peripheral [Unknown]
  - Renal impairment [Unknown]
  - General physical health deterioration [Unknown]
